FAERS Safety Report 8270847-2 (Version None)
Quarter: 2012Q2

REPORT INFORMATION
  Report Type: 
  Country: None (occurrence: None)
  Receive Date: 20120410
  Receipt Date: 20120410
  Transmission Date: 20120825
  Serious: Yes (Other)
  Sender: FDA-Public Use
  Company Number: None

PATIENT
  Age: 14 Year
  Sex: Female
  Weight: 58.059 kg

DRUGS (11)
  1. SERTRALINE HYDROCHLORIDE [Suspect]
     Indication: ANXIETY
     Dosage: 1 TAB
     Route: 048
     Dates: start: 20120115, end: 20120201
  2. FLONASE [Concomitant]
  3. SYMBICORT [Concomitant]
  4. SINGULAIR [Concomitant]
  5. NEOCON [Concomitant]
  6. AMOXICILLIN [Concomitant]
  7. SERTRALINE HYDROCHLORIDE [Concomitant]
     Indication: ANXIETY
     Dosage: 1 1/2 TAB
     Route: 048
     Dates: start: 20120201, end: 20120319
  8. OMEPRAZOLE [Concomitant]
  9. ODANSETRON [Concomitant]
  10. AZITHROMYCIN [Concomitant]
  11. ALBUTEROL [Concomitant]

REACTIONS (3)
  - INJURY [None]
  - MUSCULOSKELETAL DISORDER [None]
  - DYSKINESIA [None]
